FAERS Safety Report 15785068 (Version 2)
Quarter: 2019Q1

REPORT INFORMATION
  Report Type: Spontaneous
  Country: US (occurrence: US)
  Receive Date: 20190103
  Receipt Date: 20190128
  Transmission Date: 20190417
  Serious: No
  Sender: FDA-Public Use
  Company Number: US-PFIZER INC-2018537135

PATIENT
  Age: 62 Year
  Sex: Female

DRUGS (4)
  1. METAXALONE. [Suspect]
     Active Substance: METAXALONE
     Dosage: UNK
  2. LITHIUM. [Suspect]
     Active Substance: LITHIUM
     Dosage: UNK
  3. ALBUTEROL. [Suspect]
     Active Substance: ALBUTEROL
     Dosage: UNK
  4. METOPROLOL TARTRATE. [Suspect]
     Active Substance: METOPROLOL TARTRATE
     Dosage: UNK

REACTIONS (1)
  - Drug hypersensitivity [Unknown]
